FAERS Safety Report 10081842 (Version 1)
Quarter: 2014Q2

REPORT INFORMATION
  Report Type: Spontaneous
  Country: ES (occurrence: ES)
  Receive Date: 20140416
  Receipt Date: 20140416
  Transmission Date: 20141212
  Serious: Yes (Hospitalization)
  Sender: FDA-Public Use
  Company Number: ES-PFIZER INC-2014105243

PATIENT
  Age: 82 Year
  Sex: Male

DRUGS (5)
  1. MORPHINE SULFATE [Suspect]
     Indication: PAIN
     Dosage: 60 MG, 2X/DAY
     Route: 048
     Dates: start: 20130519, end: 20130626
  2. OMEPRAZOLE [Suspect]
     Indication: PROPHYLAXIS AGAINST GASTROINTESTINAL ULCER
     Dosage: 20 MG, DAILY
     Route: 048
     Dates: start: 20130619, end: 20130626
  3. LYRICA [Suspect]
     Indication: PAIN
     Dosage: 75 MG, 2X/DAY
     Route: 048
     Dates: start: 20130619, end: 20130626
  4. ENANTYUM [Suspect]
     Indication: PAIN
     Dosage: 25 MG, 3X/DAY
     Route: 048
     Dates: start: 20130619
  5. FORTECORTIN [Suspect]
     Indication: BRAIN OEDEMA
     Dosage: 1MG
     Route: 048
     Dates: start: 20130619

REACTIONS (3)
  - Metabolic encephalopathy [Recovered/Resolved]
  - Hypomagnesaemia [Recovered/Resolved]
  - Hypokalaemia [Recovered/Resolved]
